FAERS Safety Report 26184325 (Version 1)
Quarter: 2025Q4

REPORT INFORMATION
  Report Type: Spontaneous
  Country: CN (occurrence: CN)
  Receive Date: 20251222
  Receipt Date: 20251222
  Transmission Date: 20260117
  Serious: Yes (Disabling)
  Sender: BIO-THERA SOLUTIONS, LTD
  Company Number: CN-BAT-2025BAT001365

PATIENT
  Age: 48 Year
  Sex: Female

DRUGS (4)
  1. BEVACIZUMAB [Suspect]
     Active Substance: BEVACIZUMAB
     Indication: Rectosigmoid cancer
     Dosage: 300.00 MG, ONLY ONCE
     Route: 041
     Dates: start: 20251105, end: 20251105
  2. OXALIPLATIN [Suspect]
     Active Substance: OXALIPLATIN
     Indication: Rectosigmoid cancer
     Dosage: 170.00 MG, ONLY ONCE
     Route: 041
     Dates: start: 20251105, end: 20251105
  3. SODIUM CHLORIDE [Concomitant]
     Active Substance: SODIUM CHLORIDE
     Indication: Vehicle solution use
     Dosage: 500.00 ML, ONLY ONCE
     Route: 041
     Dates: start: 20251105, end: 20251105
  4. DEXTROSE [Concomitant]
     Active Substance: DEXTROSE MONOHYDRATE
     Indication: Vehicle solution use
     Dosage: 500.00 ML, ONLY ONCE
     Route: 041
     Dates: start: 20251105, end: 20251105

REACTIONS (4)
  - Hepatic function abnormal [Unknown]
  - Low density lipoprotein increased [Unknown]
  - Blood creatinine decreased [Unknown]
  - Blood sodium decreased [Unknown]

NARRATIVE: CASE EVENT DATE: 20251128
